FAERS Safety Report 25458032 (Version 3)
Quarter: 2025Q3

REPORT INFORMATION
  Report Type: Spontaneous
  Country: US (occurrence: US)
  Receive Date: 20250620
  Receipt Date: 20250930
  Transmission Date: 20251020
  Serious: No
  Sender: BRISTOL-MYERS SQUIBB COMPANY
  Company Number: US-BRISTOL-MYERS SQUIBB COMPANY-2025-087755

PATIENT
  Age: 62 Year
  Sex: Female

DRUGS (2)
  1. ORENCIA [Suspect]
     Active Substance: ABATACEPT
     Indication: Rheumatoid arthritis
     Dates: start: 202503
  2. ORENCIA [Suspect]
     Active Substance: ABATACEPT

REACTIONS (5)
  - Malaise [Unknown]
  - General physical health deterioration [Unknown]
  - Arthralgia [Unknown]
  - Weight increased [Unknown]
  - Joint swelling [Unknown]
